FAERS Safety Report 6707896-9 (Version None)
Quarter: 2010Q2

REPORT INFORMATION
  Report Type: 
  Country: None (occurrence: None)
  Receive Date: 20100503
  Receipt Date: 20090319
  Transmission Date: 20101027
  Serious: No
  Sender: FDA-Public Use
  Company Number: US-ASTRAZENECA-2009UW07096

PATIENT
  Age: 59 Year
  Sex: Male
  Weight: 77.1 kg

DRUGS (9)
  1. NEXIUM [Suspect]
     Indication: GASTROOESOPHAGEAL REFLUX DISEASE
     Route: 048
     Dates: start: 20081101, end: 20090201
  2. NEXIUM [Suspect]
     Route: 048
     Dates: start: 20090201, end: 20090312
  3. NEXIUM [Suspect]
     Route: 048
     Dates: start: 20090312
  4. PROTONIX [Concomitant]
  5. PRILOSEC [Concomitant]
     Route: 048
  6. ATENOLOL [Concomitant]
  7. LISINOPRIL [Concomitant]
  8. SIMVASTATIN [Concomitant]
  9. ASPIRIN [Concomitant]

REACTIONS (3)
  - DRUG INEFFECTIVE [None]
  - DYSPEPSIA [None]
  - ILL-DEFINED DISORDER [None]
